FAERS Safety Report 9641988 (Version 2)
Quarter: 2013Q4

REPORT INFORMATION
  Report Type: Report from Study
  Country: CA (occurrence: CA)
  Receive Date: 20131023
  Receipt Date: 20131023
  Transmission Date: 20140711
  Serious: Yes (Death, Other)
  Sender: FDA-Public Use
  Company Number: CA-ROCHE-1215206

PATIENT
  Age: 70 Year
  Sex: Female
  Weight: 74.8 kg

DRUGS (20)
  1. RITUXAN [Suspect]
     Indication: GRANULOMATOSIS WITH POLYANGIITIS
     Dosage: DAY 1 AND DAY 15
     Route: 042
     Dates: start: 20130225, end: 20130311
  2. PREDNISONE [Suspect]
     Indication: GRANULOMATOSIS WITH POLYANGIITIS
     Route: 048
     Dates: start: 20090914
  3. PREDNISONE [Suspect]
     Indication: INTERSTITIAL LUNG DISEASE
  4. ALLOPURINOL [Concomitant]
     Indication: GOUT
     Route: 048
  5. LASIX [Concomitant]
     Indication: ATRIAL FIBRILLATION
     Route: 048
  6. LASIX [Concomitant]
     Indication: CARDIAC FAILURE CONGESTIVE
  7. NADOLOL [Concomitant]
     Indication: ATRIAL FIBRILLATION
     Route: 048
  8. RABEPRAZOLE [Concomitant]
  9. GLICLAZIDE [Concomitant]
  10. WARFARIN [Concomitant]
     Indication: ATRIAL FIBRILLATION
     Route: 048
  11. ATROVENT [Concomitant]
  12. FERROUS SULFATE [Concomitant]
  13. ZOPICLONE [Concomitant]
  14. ZYLOPRIM [Concomitant]
  15. AMIODARONE [Concomitant]
  16. AMOXI [Concomitant]
  17. ZYLOPRIM [Concomitant]
  18. IPRATROPIUM [Concomitant]
  19. RISEDRONATE [Concomitant]
  20. SULFATRIM DS [Concomitant]

REACTIONS (7)
  - Escherichia sepsis [Fatal]
  - Nasopharyngitis [Recovered/Resolved]
  - Arthralgia [Not Recovered/Not Resolved]
  - Weight increased [Not Recovered/Not Resolved]
  - Dysuria [Not Recovered/Not Resolved]
  - Back pain [Not Recovered/Not Resolved]
  - Hypotension [Not Recovered/Not Resolved]
